FAERS Safety Report 4911755-1 (Version None)
Quarter: 2006Q1

REPORT INFORMATION
  Report Type: 
  Country: None (occurrence: None)
  Receive Date: 20060215
  Receipt Date: 20060206
  Transmission Date: 20060701
  Serious: Yes (Other)
  Sender: FDA-Public Use
  Company Number: US-JNJFOC-20060201572

PATIENT
  Sex: Female
  Weight: 73.03 kg

DRUGS (3)
  1. REMICADE [Suspect]
     Route: 042
  2. REMICADE [Suspect]
     Indication: RHEUMATOID ARTHRITIS
     Dosage: PATIENT WAS ON REMICADE FOR 2 YEARS.
     Route: 042
  3. PRAVASTATIN [Concomitant]

REACTIONS (2)
  - DYSPNOEA [None]
  - LUNG NEOPLASM [None]
